FAERS Safety Report 10045537 (Version 1)
Quarter: 2014Q1

REPORT INFORMATION
  Report Type: Spontaneous
  Country: US (occurrence: US)
  Receive Date: 20140328
  Receipt Date: 20140328
  Transmission Date: 20141002
  Serious: No
  Sender: FDA-Public Use
  Company Number: US-TEVA-471287USA

PATIENT
  Sex: Female

DRUGS (1)
  1. NUVIGIL [Suspect]

REACTIONS (4)
  - Nervousness [Recovered/Resolved]
  - Feeling jittery [Recovered/Resolved]
  - Tremor [Unknown]
  - Tremor [Unknown]
